FAERS Safety Report 5879829-9 (Version None)
Quarter: 2008Q3

REPORT INFORMATION
  Report Type: 
  Country: None (occurrence: None)
  Receive Date: 20080912
  Receipt Date: 20080905
  Transmission Date: 20090109
  Serious: Yes (Life-Threatening, Hospitalization)
  Sender: FDA-Public Use
  Company Number: US-GENENTECH-267039

PATIENT
  Age: 56 Year
  Sex: Male

DRUGS (12)
  1. BEVACIZUMAB [Suspect]
     Indication: HEPATIC NEOPLASM MALIGNANT
     Dosage: UNK
     Route: 042
     Dates: start: 20070425
  2. BEVACIZUMAB [Suspect]
     Dosage: 5 MG/KG, UNK
     Route: 042
     Dates: start: 20080507, end: 20080507
  3. S1 (FLUOROPYRIMIDINE) [Suspect]
     Indication: HEPATIC NEOPLASM MALIGNANT
     Dosage: UNK
     Dates: start: 20070425
  4. OXALIPLATIN [Suspect]
     Indication: HEPATIC NEOPLASM MALIGNANT
     Dosage: UNK
     Route: 042
     Dates: start: 20070424
  5. OXALIPLATIN [Suspect]
     Dosage: UNK
     Dates: start: 20070702, end: 20070702
  6. LANSOPRAZOLE [Concomitant]
     Indication: DRUG USE FOR UNKNOWN INDICATION
  7. EPIVIR [Concomitant]
     Indication: HEPATITIS B
     Route: 048
  8. SPIRONOLACTONE [Concomitant]
     Indication: DIURETIC THERAPY
     Dosage: 50 MG, UNK
     Route: 048
  9. CALCIUM [Concomitant]
     Indication: DRUG USE FOR UNKNOWN INDICATION
  10. MAGNESIUM SULFATE [Concomitant]
     Indication: DRUG USE FOR UNKNOWN INDICATION
  11. DILAUDID [Concomitant]
     Indication: PAIN
  12. URSODIOL [Concomitant]
     Indication: DRUG USE FOR UNKNOWN INDICATION
     Dosage: 300 MG, UNK
     Route: 048

REACTIONS (3)
  - DIARRHOEA [None]
  - INTERNATIONAL NORMALISED RATIO INCREASED [None]
  - SEPTIC SHOCK [None]
